FAERS Safety Report 22332616 (Version 1)
Quarter: 2023Q2

REPORT INFORMATION
  Report Type: Spontaneous
  Country: CN (occurrence: CN)
  Receive Date: 20230517
  Receipt Date: 20230517
  Transmission Date: 20230721
  Serious: Yes (Other)
  Sender: FDA-Public Use
  Company Number: None

PATIENT
  Age: 61 Year
  Sex: Female
  Weight: 72.5 kg

DRUGS (16)
  1. CYCLOPHOSPHAMIDE [Suspect]
     Active Substance: CYCLOPHOSPHAMIDE
     Indication: Invasive ductal breast carcinoma
     Dosage: 1 G, QD, DILUTED WITH 100 ML 0.9% SODIUM CHLORIDE, SECOND CYCLE OF CHEMOTHERAPY
     Route: 041
     Dates: start: 20230413, end: 20230414
  2. CYCLOPHOSPHAMIDE [Suspect]
     Active Substance: CYCLOPHOSPHAMIDE
     Indication: HER2 negative breast cancer
  3. CYCLOPHOSPHAMIDE [Suspect]
     Active Substance: CYCLOPHOSPHAMIDE
     Indication: Chemotherapy
  4. SODIUM CHLORIDE [Suspect]
     Active Substance: SODIUM CHLORIDE
     Indication: Medication dilution
     Dosage: 100 ML, QD, STRENGTH: 0.9%, USED TO DILUTE WITH 1 G CYCLOPHOSPHAMIDE, SECOND CYCLE OF CHEMOTHERAPY
     Route: 041
     Dates: start: 20230413, end: 20230414
  5. SODIUM CHLORIDE [Suspect]
     Active Substance: SODIUM CHLORIDE
     Dosage: 60 ML, QD, STRENGTH: 0.0 %, USED TO DILUTE WITH 110 MG EPIRUBICIN HYDROCHLORIDE, SECOND CYCLE OF CHE
     Route: 050
     Dates: start: 20230413, end: 20230414
  6. DEXTROSE [Suspect]
     Active Substance: DEXTROSE\DEXTROSE MONOHYDRATE
     Indication: Medication dilution
     Dosage: 500 ML, QD, STRENGTH: 5%, USED TO DILUTE WITH 240 MG PACLITAXEL LIPOSOME, SECOND CYCLE OF CHEMOTHERA
     Route: 041
     Dates: start: 20230413, end: 20230414
  7. EPIRUBICIN [Suspect]
     Active Substance: EPIRUBICIN
     Indication: Invasive ductal breast carcinoma
     Dosage: 110 MG, QD, DILUTED WITH 60 ML 0.9% SODIUM CHLORIDE, SECOND CYCLE OF CHEMOTHERAPY, ROUTE: INTRA-PUMP
     Route: 050
     Dates: start: 20230413, end: 20230414
  8. EPIRUBICIN [Suspect]
     Active Substance: EPIRUBICIN
     Indication: HER2 negative breast cancer
  9. EPIRUBICIN [Suspect]
     Active Substance: EPIRUBICIN
     Indication: Chemotherapy
  10. PACLITAXEL [Suspect]
     Active Substance: PACLITAXEL
     Indication: Invasive ductal breast carcinoma
     Dosage: 240 MG, QD, DILUTED WITH 500 ML 5% GLUCOSE, SECOND CYCLE OF CHEMOTHERAPY
     Route: 041
     Dates: start: 20230413, end: 20230414
  11. PACLITAXEL [Suspect]
     Active Substance: PACLITAXEL
     Indication: HER2 negative breast cancer
  12. PACLITAXEL [Suspect]
     Active Substance: PACLITAXEL
     Indication: Chemotherapy
  13. DEXAMETHASONE SODIUM PHOSPHATE [Concomitant]
     Active Substance: DEXAMETHASONE SODIUM PHOSPHATE
     Indication: Prophylaxis of nausea and vomiting
     Dosage: 5 MG (BEFORE CHEMOTHERAPY)
     Route: 042
     Dates: start: 20230413
  14. DEXAMETHASONE SODIUM PHOSPHATE [Concomitant]
     Active Substance: DEXAMETHASONE SODIUM PHOSPHATE
     Indication: Prophylaxis
  15. PALONOSETRON HYDROCHLORIDE [Concomitant]
     Active Substance: PALONOSETRON HYDROCHLORIDE
     Indication: Prophylaxis of nausea and vomiting
     Dosage: 0.25 MG (BEFORE CHEMOTHERAPY)
     Route: 042
     Dates: start: 20230413
  16. PALONOSETRON HYDROCHLORIDE [Concomitant]
     Active Substance: PALONOSETRON HYDROCHLORIDE
     Indication: Prophylaxis

REACTIONS (3)
  - Liver injury [Not Recovered/Not Resolved]
  - Nausea [Not Recovered/Not Resolved]
  - Vomiting [Not Recovered/Not Resolved]

NARRATIVE: CASE EVENT DATE: 20230414
